FAERS Safety Report 10151411 (Version 2)
Quarter: 2014Q2

REPORT INFORMATION
  Report Type: Report from Study
  Country: US (occurrence: US)
  Receive Date: 20140503
  Receipt Date: 20140503
  Transmission Date: 20141212
  Serious: Yes (Other)
  Sender: FDA-Public Use
  Company Number: PHHY2013US129920

PATIENT
  Sex: Female
  Weight: 60.32 kg

DRUGS (2)
  1. GILENYA [Suspect]
     Indication: MULTIPLE SCLEROSIS
     Dosage: 0.5 MG, QD
     Route: 048
     Dates: start: 20110901
  2. GILENYA [Suspect]
     Dosage: 0.5 MG, QD
     Route: 048
     Dates: start: 20140304

REACTIONS (28)
  - Basal cell carcinoma [Unknown]
  - Optic neuritis [Unknown]
  - Blindness [Unknown]
  - Visual impairment [Unknown]
  - Infection [Unknown]
  - Full blood count abnormal [Unknown]
  - Malaise [Unknown]
  - Sexual dysfunction [Unknown]
  - Urinary incontinence [Unknown]
  - Stress [Unknown]
  - Constipation [Unknown]
  - Emotional distress [Unknown]
  - Depression [Unknown]
  - Multiple sclerosis relapse [Unknown]
  - Muscular weakness [Recovering/Resolving]
  - Fatigue [Recovering/Resolving]
  - Cognitive disorder [Recovering/Resolving]
  - Paraesthesia [Unknown]
  - Hyperaesthesia [Unknown]
  - Coordination abnormal [Unknown]
  - Ataxia [Unknown]
  - Dizziness [Unknown]
  - Disturbance in attention [Unknown]
  - Affect lability [Unknown]
  - Mobility decreased [Unknown]
  - Muscle spasticity [Recovering/Resolving]
  - Gait disturbance [Unknown]
  - Headache [Unknown]
